FAERS Safety Report 5341535-7 (Version None)
Quarter: 2007Q2

REPORT INFORMATION
  Report Type: 
  Country: None (occurrence: None)
  Receive Date: 20070530
  Receipt Date: 20070515
  Transmission Date: 20071010
  Serious: Yes (Death)
  Sender: FDA-Public Use
  Company Number: 2007000891

PATIENT
  Age: 50 Year
  Sex: Male

DRUGS (1)
  1. TARCEVA [Suspect]
     Dosage: 150 MG (QD), ORAL
     Route: 048
     Dates: start: 20070123, end: 20070308

REACTIONS (1)
  - DYSPNOEA [None]
